FAERS Safety Report 7151177-9 (Version None)
Quarter: 2010Q4

REPORT INFORMATION
  Report Type: 
  Country: None (occurrence: None)
  Receive Date: 20101210
  Receipt Date: 20101202
  Transmission Date: 20110411
  Serious: Yes (Hospitalization, Other)
  Sender: FDA-Public Use
  Company Number: US-JNJFOC-20100703637

PATIENT
  Sex: Male

DRUGS (6)
  1. LEVAQUIN [Suspect]
     Indication: SURGERY
     Route: 048
  2. LEVAQUIN [Suspect]
     Indication: INFLUENZA
     Route: 048
  3. LEVAQUIN [Suspect]
     Indication: NASOPHARYNGITIS
     Route: 048
  4. LEVAQUIN [Suspect]
     Indication: INFECTION
     Route: 048
  5. LEVAQUIN [Suspect]
     Indication: PNEUMONIA
     Route: 048
  6. LEVAQUIN [Suspect]
     Route: 048

REACTIONS (6)
  - BURSITIS [None]
  - JOINT CAPSULE RUPTURE [None]
  - MUSCLE RUPTURE [None]
  - OSTEOARTHRITIS [None]
  - PERIARTHRITIS [None]
  - ROTATOR CUFF SYNDROME [None]
